FAERS Safety Report 4865906-8 (Version None)
Quarter: 2005Q4

REPORT INFORMATION
  Report Type: 
  Country: None (occurrence: None)
  Receive Date: 20051223
  Receipt Date: 20051216
  Transmission Date: 20060501
  Serious: Yes (Other)
  Sender: FDA-Public Use
  Company Number: PHBS2005BE18826

PATIENT
  Age: 55 Year
  Sex: Female

DRUGS (7)
  1. TRILEPTAL [Suspect]
     Indication: GRAND MAL CONVULSION
     Dosage: 300 MG, BID
     Dates: start: 20051201
  2. TRILEPTAL [Suspect]
     Dosage: 600 MG, BID
     Route: 048
     Dates: start: 20051212
  3. TRILEPTAL [Suspect]
     Dosage: 450 MG, BID
     Route: 048
     Dates: start: 20051214
  4. DEPAKENE [Concomitant]
     Indication: GRAND MAL CONVULSION
     Dates: end: 20051212
  5. DIPHANTOINE [Concomitant]
     Dosage: 300 MG/D
  6. DIPHANTOINE [Concomitant]
     Dosage: 400 MG/D
     Dates: start: 20051212
  7. LAMICTAL [Concomitant]
     Dosage: 50 MG/D

REACTIONS (5)
  - APHASIA [None]
  - DIZZINESS [None]
  - NYSTAGMUS [None]
  - TREMOR [None]
  - VISION BLURRED [None]
